FAERS Safety Report 7611829-0 (Version None)
Quarter: 2011Q3

REPORT INFORMATION
  Report Type: 
  Country: None (occurrence: None)
  Receive Date: 20110715
  Receipt Date: 20110705
  Transmission Date: 20111222
  Serious: Yes (Hospitalization)
  Sender: FDA-Public Use
  Company Number: HU-SANOFI-AVENTIS-2011SA043763

PATIENT
  Age: 78 Year
  Sex: Male
  Weight: 119 kg

DRUGS (8)
  1. NEBIVOLOL [Concomitant]
     Dates: end: 20110228
  2. IPRATROPIUM BROMIDE [Concomitant]
     Dates: end: 20110228
  3. INDAPAMIDE [Concomitant]
     Dates: end: 20110228
  4. DRONEDARONE HCL [Suspect]
     Indication: ATRIAL FIBRILLATION
     Route: 048
     Dates: start: 20110222, end: 20110228
  5. FUROSEMIDE [Concomitant]
  6. ACENOCOUMAROL [Concomitant]
     Dosage: 10MG WEEKLY
     Dates: end: 20110228
  7. LOSARTAN [Concomitant]
     Dates: end: 20110228
  8. CLOPAMIDE [Concomitant]
     Dates: end: 20110228

REACTIONS (1)
  - ISCHAEMIC STROKE [None]
